FAERS Safety Report 8463907-4 (Version None)
Quarter: 2012Q2

REPORT INFORMATION
  Report Type: 
  Country: None (occurrence: None)
  Receive Date: 20120625
  Receipt Date: 20120615
  Transmission Date: 20120825
  Serious: Yes (Death, Life-Threatening, Hospitalization)
  Sender: FDA-Public Use
  Company Number: JP-JNJFOC-20100601361

PATIENT
  Sex: Male
  Weight: 56 kg

DRUGS (38)
  1. PREDNISOLONE [Suspect]
     Route: 048
  2. PREDNISOLONE [Suspect]
     Route: 048
  3. RHEUMATREX [Suspect]
     Indication: POLYARTERITIS NODOSA
     Route: 048
     Dates: start: 20070301, end: 20070401
  4. COTRIM [Concomitant]
     Route: 048
     Dates: start: 20100107
  5. ISODINE GARGLE [Concomitant]
     Dosage: 30 ML X 2 BOTTLES 3-4 TIMES/DAY; ROUTE: OR
  6. PREDNISOLONE [Suspect]
     Route: 048
  7. CYCLOSPORINE [Suspect]
     Indication: ILL-DEFINED DISORDER
     Route: 065
     Dates: start: 20090212
  8. CYCLOSPORINE [Suspect]
     Route: 065
     Dates: start: 20090514
  9. CYCLOPHOSPHAMIDE [Suspect]
     Route: 048
     Dates: end: 20081101
  10. TACROLIMUS [Suspect]
     Indication: ILL-DEFINED DISORDER
     Route: 065
     Dates: start: 20081101
  11. AZATHIOPRINE [Concomitant]
     Route: 048
     Dates: start: 20071201
  12. REMICADE [Suspect]
     Indication: POLYARTERITIS NODOSA
     Route: 042
     Dates: start: 20100507
  13. REMICADE [Suspect]
     Route: 042
     Dates: start: 20100204
  14. PREDNISOLONE [Suspect]
     Route: 048
  15. EPADEL S [Concomitant]
     Route: 048
     Dates: start: 20080226, end: 20100525
  16. LANSOPRAZOLE [Concomitant]
     Route: 048
     Dates: end: 20100512
  17. MAGLAX [Concomitant]
     Route: 048
  18. REMICADE [Suspect]
     Route: 042
     Dates: start: 20100119
  19. PREDNISOLONE [Suspect]
     Route: 048
  20. PREDNISOLONE [Suspect]
     Route: 048
  21. PREDNISOLONE [Suspect]
     Route: 048
  22. RHEUMATREX [Suspect]
     Route: 048
     Dates: start: 20070401, end: 20071101
  23. ACTONEL [Concomitant]
     Indication: OSTEOPOROSIS
     Route: 048
     Dates: start: 20080430, end: 20100519
  24. ADALAT CC [Concomitant]
     Route: 048
  25. VITAMIN B12 [Concomitant]
     Route: 048
  26. RHEUMATREX [Suspect]
     Route: 048
     Dates: start: 20100108
  27. RHEUMATREX [Suspect]
     Route: 048
     Dates: start: 20100507
  28. CYCLOPHOSPHAMIDE [Suspect]
     Indication: ILL-DEFINED DISORDER
     Route: 042
     Dates: start: 20080430
  29. LOSARTAN POTASSIUM AND HYDROCHLOROTHIAZIDE [Concomitant]
     Route: 048
     Dates: end: 20100512
  30. PRAVASTATIN [Concomitant]
     Route: 048
     Dates: end: 20100512
  31. PROCYLIN [Concomitant]
     Dosage: DOSE: 40 RG 3 TIMES PER DAY
     Route: 048
  32. LOXONIN [Concomitant]
     Route: 048
  33. PREDNISOLONE [Suspect]
     Indication: ILL-DEFINED DISORDER
     Route: 048
  34. PREDNISOLONE [Suspect]
     Route: 048
  35. PREDNISOLONE [Suspect]
     Route: 048
  36. AZATHIOPRINE [Concomitant]
     Route: 048
  37. PREDNISOLONE [Concomitant]
     Route: 048
     Dates: start: 20100305
  38. WARFARIN SODIUM [Concomitant]
     Route: 048
     Dates: end: 20100512

REACTIONS (8)
  - PROGRESSIVE MULTIFOCAL LEUKOENCEPHALOPATHY [None]
  - URINARY TRACT INFECTION PSEUDOMONAL [None]
  - DIARRHOEA [None]
  - STAPHYLOCOCCAL INFECTION [None]
  - LIVER DISORDER [None]
  - JC VIRUS INFECTION [None]
  - URINARY TRACT INFECTION ENTEROCOCCAL [None]
  - ARTHRITIS [None]
